FAERS Safety Report 14261427 (Version 6)
Quarter: 2018Q2

REPORT INFORMATION
  Report Type: Spontaneous
  Country: US (occurrence: US)
  Receive Date: 20171208
  Receipt Date: 20180411
  Transmission Date: 20180711
  Serious: Yes (Other)
  Sender: FDA-Public Use
  Company Number: US-AMGEN-USASP2017180928

PATIENT
  Age: 37 Year
  Sex: Female
  Weight: 71.2 kg

DRUGS (1)
  1. ENBREL [Suspect]
     Active Substance: ETANERCEPT
     Indication: RHEUMATOID ARTHRITIS
     Dosage: 50 MG, QWK
     Route: 058
     Dates: start: 20170615, end: 20171130

REACTIONS (7)
  - Injection site pruritus [Unknown]
  - Rheumatoid arthritis [Unknown]
  - Injection site erythema [Recovered/Resolved]
  - Pharyngitis [Unknown]
  - Injection site pain [Recovered/Resolved]
  - Mouth ulceration [Unknown]
  - Drug effect incomplete [Unknown]

NARRATIVE: CASE EVENT DATE: 2017
